FAERS Safety Report 13392020 (Version 1)
Quarter: 2017Q1

REPORT INFORMATION
  Report Type: Report from Study
  Country: US (occurrence: US)
  Receive Date: 20170331
  Receipt Date: 20170331
  Transmission Date: 20170429
  Serious: Yes (Hospitalization)
  Sender: FDA-Public Use
  Company Number: US-SA-2017SA052439

PATIENT
  Sex: Female

DRUGS (1)
  1. LEMTRADA [Suspect]
     Active Substance: ALEMTUZUMAB
     Route: 041

REACTIONS (4)
  - International normalised ratio decreased [Unknown]
  - Toothache [Not Recovered/Not Resolved]
  - Blood potassium decreased [Unknown]
  - Cystitis [Unknown]

NARRATIVE: CASE EVENT DATE: 201703
